FAERS Safety Report 17526205 (Version 1)
Quarter: 2020Q1

REPORT INFORMATION
  Report Type: Spontaneous
  Country: BE (occurrence: BE)
  Receive Date: 20200311
  Receipt Date: 20200311
  Transmission Date: 20200409
  Serious: Yes (Other)
  Sender: FDA-Public Use
  Company Number: BE-MYLANLABS-2020M1025219

PATIENT
  Age: 26 Year
  Sex: Female

DRUGS (12)
  1. DOXORUBICIN [Suspect]
     Active Substance: DOXORUBICIN
     Indication: SARCOIDOSIS
     Dosage: UNK UNK, CYCLE (UNK, QCY)
     Route: 065
  2. DYDROGESTERONE [Concomitant]
     Active Substance: DYDROGESTERONE
     Indication: MENSTRUATION IRREGULAR
     Dosage: UNK
  3. BLEOMYCIN HYDROCHLORIDE [Suspect]
     Active Substance: BLEOMYCIN HYDROCHLORIDE
     Indication: SARCOIDOSIS
  4. HYDROCORTISONE ACETATE. [Concomitant]
     Active Substance: HYDROCORTISONE ACETATE
     Indication: HORMONE REPLACEMENT THERAPY
     Dosage: 30 MILLIGRAM, QD (30 MG, QD)
  5. DACARBAZINE. [Suspect]
     Active Substance: DACARBAZINE
     Indication: HODGKIN^S DISEASE NODULAR SCLEROSIS STAGE II
     Dosage: UNK UNK, CYCLE (UNK UNK, QCY)
     Route: 065
  6. METHYLPREDNISOLONE. [Concomitant]
     Active Substance: METHYLPREDNISOLONE
     Dosage: UNK
     Route: 048
  7. DOXORUBICIN [Suspect]
     Active Substance: DOXORUBICIN
     Indication: HODGKIN^S DISEASE NODULAR SCLEROSIS STAGE II
  8. DACARBAZINE. [Suspect]
     Active Substance: DACARBAZINE
     Indication: SARCOIDOSIS
  9. LEVOTHYROXINE. [Concomitant]
     Active Substance: LEVOTHYROXINE
     Indication: HORMONE REPLACEMENT THERAPY
     Dosage: 50 MICROGRAM, QD (50 UG, QD)
  10. EXAL                               /00115802/ [Suspect]
     Active Substance: VINBLASTINE SULFATE
     Indication: SARCOIDOSIS
  11. EXAL                               /00115802/ [Suspect]
     Active Substance: VINBLASTINE SULFATE
     Indication: HODGKIN^S DISEASE NODULAR SCLEROSIS STAGE II
     Dosage: UNK UNK, CYCLE (UNK UNK, QCY)
     Route: 065
  12. BLEOMYCIN HYDROCHLORIDE [Suspect]
     Active Substance: BLEOMYCIN HYDROCHLORIDE
     Indication: HODGKIN^S DISEASE NODULAR SCLEROSIS STAGE II
     Dosage: UNK UNK, CYCLE (UNK UNK, QCY)
     Route: 065

REACTIONS (1)
  - Gastrointestinal disorder [Unknown]
